FAERS Safety Report 6471833-5 (Version None)
Quarter: 2009Q4

REPORT INFORMATION
  Report Type: 
  Country: None (occurrence: None)
  Receive Date: 20091203
  Receipt Date: 20080512
  Transmission Date: 20100525
  Serious: No
  Sender: FDA-Public Use
  Company Number: US-ELI_LILLY_AND_COMPANY-US200803005387

PATIENT
  Age: 22 Year
  Sex: Male

DRUGS (4)
  1. ZYPREXA [Suspect]
     Indication: DEPRESSION
     Dosage: 5 MG, DAILY (1/D)
     Dates: start: 20080118, end: 20080327
  2. PAXIL [Concomitant]
     Dosage: 20 MG, UNK
  3. KLONOPIN [Concomitant]
     Dosage: 0.5 MG, UNK
  4. GEODON [Concomitant]
     Dosage: 60 MG, UNK
     Dates: start: 20071206, end: 20080118

REACTIONS (1)
  - THROMBOCYTOPENIA [None]
